FAERS Safety Report 9054964 (Version 3)
Quarter: 2013Q1

REPORT INFORMATION
  Report Type: Spontaneous
  Country: US (occurrence: US)
  Receive Date: 20130208
  Receipt Date: 20130215
  Transmission Date: 20140127
  Serious: Yes (Life-Threatening, Hospitalization, Other)
  Sender: FDA-Public Use
  Company Number: PHEH2012US022522

PATIENT
  Age: 76 None
  Sex: Female

DRUGS (26)
  1. RECLAST [Suspect]
     Indication: OSTEOPOROSIS
     Dosage: 5 MG,YEARLY
     Route: 042
     Dates: start: 20121002
  2. COUMADINE [Concomitant]
  3. AMIODARONE [Concomitant]
  4. ALLOPURINOL [Concomitant]
     Dosage: 100 MG, UNK
     Route: 048
  5. NEURONTIN [Concomitant]
     Dosage: 2 DF, TID
     Route: 048
  6. NORCO [Concomitant]
     Dosage: 1 DF, QID
  7. FLURAZEPAM HCL [Concomitant]
     Dosage: 30 MG, 1 TAB ORALLY AT BED TIME
     Route: 048
  8. TRIAMTERENE AND HYDROCHLOROTHIAZID [Concomitant]
     Dosage: 1 DF, QD AS NEEDED FOR TRAVEL
  9. CRESTOR [Concomitant]
     Dosage: 10 MG, QD
     Route: 048
  10. LOMOTIL [Concomitant]
     Dosage: 2 DF, QID
     Route: 048
  11. VIT D [Concomitant]
     Dosage: 50000 UKN, 1 CAPSULE TWICE A WEEK
     Route: 048
  12. WARFARIN SODIUM [Concomitant]
     Dosage: 2.5 MG, 1 TO 2 TABS BY MOUTH WHEN REQUIRED.
     Route: 048
  13. AMIODARONE HYDROCHLORIDE [Concomitant]
     Dosage: 200 MG, QD
     Route: 048
  14. ASPIRIN [Concomitant]
     Dosage: 325 MG, QD
     Route: 048
  15. FENTANYL [Concomitant]
     Dosage: 75 MCG/HR PT72 1 PATCH EVERY THREE DAYS
     Route: 061
  16. NASONEX [Concomitant]
     Dosage: 2 SPRAY EACH NOSTRIL
     Route: 045
  17. TUSSIONEX PENNKINETIC [Concomitant]
     Indication: COUGH
     Dosage: 1 TSP EVERY 12 HOURS
  18. NORVASC [Concomitant]
     Dosage: 10 MG, QD
  19. HYDROCODONE [Concomitant]
  20. DURAGESIC//FENTANYL [Concomitant]
  21. LORAZEPAM [Concomitant]
  22. MAXZIDE [Concomitant]
  23. FLUVAX [Concomitant]
  24. BYSTOLIC [Concomitant]
     Dosage: 5 MG AT BED TIME
  25. PNEUMOVAX [Concomitant]
  26. ZOSTAVAX [Concomitant]

REACTIONS (40)
  - Respiratory failure [Unknown]
  - Hypoxia [Recovering/Resolving]
  - Dyspnoea [Unknown]
  - Renal failure [Recovering/Resolving]
  - Renal tubular necrosis [Unknown]
  - Glomerular filtration rate decreased [Unknown]
  - Confusional state [Unknown]
  - Speech disorder [Recovering/Resolving]
  - Asthenia [Unknown]
  - Lethargy [Unknown]
  - Cardiac failure congestive [Unknown]
  - Heart valve incompetence [Unknown]
  - Chest pain [Unknown]
  - Cellulitis [Unknown]
  - Swelling [Unknown]
  - Erythema [Unknown]
  - Deep vein thrombosis [Unknown]
  - Fall [Unknown]
  - Face injury [Unknown]
  - Contusion [Unknown]
  - Fracture [Unknown]
  - Urinary tract infection [Unknown]
  - Blood urine present [Unknown]
  - Bacterial test positive [Unknown]
  - Phlebitis [Unknown]
  - Thoracic vertebral fracture [Unknown]
  - Haemorrhage [Unknown]
  - Pleural effusion [Unknown]
  - Pleuritic pain [Unknown]
  - Pulmonary hypertension [Unknown]
  - Pulmonary oedema [Unknown]
  - Atrial fibrillation [Unknown]
  - Hypervitaminosis D [Unknown]
  - Hypocalcaemia [Unknown]
  - Proteinuria [Unknown]
  - Constipation [Unknown]
  - Arthralgia [Unknown]
  - Cough [Unknown]
  - Pain [Unknown]
  - Malaise [Unknown]
